FAERS Safety Report 10867200 (Version 2)
Quarter: 2015Q2

REPORT INFORMATION
  Report Type: Spontaneous
  Country: FR (occurrence: FR)
  Receive Date: 20150225
  Receipt Date: 20150402
  Transmission Date: 20150821
  Serious: Yes (Death)
  Sender: FDA-Public Use
  Company Number: FR-NOVOPROD-439794

PATIENT
  Age: 70 Year
  Sex: Female

DRUGS (5)
  1. NOVOSEVEN [Suspect]
     Active Substance: COAGULATION FACTOR VIIA RECOMBINANT HUMAN
     Indication: ACQUIRED HAEMOPHILIA
     Dosage: 90 ?G/KG EVERY 2 TO 4 HOURS
     Route: 065
     Dates: start: 20141212, end: 20141214
  2. FEIBA [Suspect]
     Active Substance: ANTI-INHIBITOR COAGULANT COMPLEX
     Indication: PRODUCT USED FOR UNKNOWN INDICATION
     Dosage: UNK
     Route: 065
  3. CORTANCYL [Concomitant]
     Active Substance: PREDNISONE
     Dosage: UNK
  4. OFLOCET                            /00731801/ [Concomitant]
     Active Substance: OFLOXACIN
     Dosage: UNK
  5. ROCEPHINE [Concomitant]
     Active Substance: CEFTRIAXONE SODIUM
     Dosage: UNK

REACTIONS (1)
  - Drug ineffective [Fatal]
